FAERS Safety Report 5670805-8 (Version None)
Quarter: 2008Q1

REPORT INFORMATION
  Report Type: 
  Country: None (occurrence: None)
  Receive Date: 20080318
  Receipt Date: 20080307
  Transmission Date: 20080703
  Serious: Yes (Hospitalization)
  Sender: FDA-Public Use
  Company Number: PL-JNJFOC-20071008066

PATIENT
  Sex: Male
  Weight: 103 kg

DRUGS (7)
  1. PALIPERIDONE [Suspect]
     Indication: SCHIZOPHRENIA
     Route: 048
  2. DIAZEPAM [Concomitant]
  3. DIAZEPAM [Concomitant]
  4. DIAZEPAM [Concomitant]
     Indication: AGITATION
  5. FENACTIL [Concomitant]
     Route: 048
  6. FENACTIL [Concomitant]
     Dosage: 50-0-100MG
     Route: 048
  7. FENACTIL [Concomitant]
     Indication: SCHIZOPHRENIA
     Route: 048

REACTIONS (1)
  - SELF INJURIOUS BEHAVIOUR [None]
